FAERS Safety Report 8561431-1 (Version None)
Quarter: 2012Q3

REPORT INFORMATION
  Report Type: 
  Country: None (occurrence: None)
  Receive Date: 20120802
  Receipt Date: 20120726
  Transmission Date: 20120928
  Serious: Yes (Hospitalization)
  Sender: FDA-Public Use
  Company Number: JP-GLAXOSMITHKLINE-B0757122A

PATIENT
  Sex: Female
  Weight: 47 kg

DRUGS (18)
  1. PREDONINE [Concomitant]
     Indication: IDIOPATHIC THROMBOCYTOPENIC PURPURA
     Dosage: 5MG PER DAY
     Route: 048
     Dates: end: 20110527
  2. REVOLADE [Suspect]
     Dosage: 12.5MG PER DAY
     Route: 048
     Dates: start: 20110624, end: 20110728
  3. REVOLADE [Suspect]
     Route: 048
     Dates: start: 20110812, end: 20111013
  4. ONEALFA [Concomitant]
     Dosage: 1MCG PER DAY
     Route: 048
  5. PREDNISOLONE [Concomitant]
     Indication: IDIOPATHIC THROMBOCYTOPENIC PURPURA
     Dosage: 3MG PER DAY
     Route: 048
     Dates: start: 20110602, end: 20111215
  6. REVOLADE [Suspect]
     Dosage: 12.5MG TWICE PER DAY
     Route: 048
     Dates: start: 20110422, end: 20110519
  7. URSO 250 [Concomitant]
     Dosage: 1200MG PER DAY
     Route: 048
     Dates: start: 20110524
  8. ADONA (AC-17) [Concomitant]
     Indication: IDIOPATHIC THROMBOCYTOPENIC PURPURA
     Dosage: 30MG PER DAY
     Route: 048
     Dates: start: 20120224
  9. PREDONINE [Concomitant]
     Dosage: 10MG PER DAY
     Route: 048
     Dates: start: 20110528, end: 20110601
  10. ROMIPLOSTIM [Concomitant]
     Indication: IDIOPATHIC THROMBOCYTOPENIC PURPURA
     Dosage: 50MCG PER DAY
     Route: 058
     Dates: start: 20120224
  11. REVOLADE [Suspect]
     Indication: IDIOPATHIC THROMBOCYTOPENIC PURPURA
     Dosage: 12.5MG PER DAY
     Route: 048
     Dates: start: 20110408, end: 20110421
  12. REVOLADE [Suspect]
     Dosage: 12.5MG PER DAY
     Route: 048
     Dates: start: 20110520, end: 20110522
  13. REVOLADE [Suspect]
     Dosage: 12.5MG TWICE PER DAY
     Route: 048
     Dates: start: 20110523, end: 20110527
  14. REVOLADE [Suspect]
     Dosage: 12.5MG PER DAY
     Route: 048
     Dates: start: 20111014, end: 20120224
  15. PREDONINE [Concomitant]
     Dosage: 5MG PER DAY
     Route: 048
     Dates: start: 20110602
  16. FAMOTIDINE [Concomitant]
     Indication: GASTRITIS PROPHYLAXIS
     Dosage: 20MG PER DAY
     Route: 048
  17. URSO 250 [Concomitant]
     Dosage: 900MG PER DAY
     Route: 048
     Dates: end: 20110523
  18. REVOLADE [Suspect]
     Route: 048
     Dates: start: 20110729, end: 20110811

REACTIONS (1)
  - MYOCARDIAL ISCHAEMIA [None]
